FAERS Safety Report 12771814 (Version 1)
Quarter: 2016Q3

REPORT INFORMATION
  Report Type: Report from Study
  Country: CH (occurrence: CH)
  Receive Date: 20160922
  Receipt Date: 20160922
  Transmission Date: 20161109
  Serious: Yes (Death, Other)
  Sender: FDA-Public Use
  Company Number: CH-BAYER-2016-182446

PATIENT

DRUGS (2)
  1. CLOPIDOGREL [Interacting]
     Active Substance: CLOPIDOGREL BISULFATE
  2. ACETYLSALICYLIC ACID [Suspect]
     Active Substance: ASPIRIN

REACTIONS (4)
  - Haemorrhage [None]
  - Drug administration error [None]
  - Cardiac arrest [Fatal]
  - Labelled drug-drug interaction medication error [None]
